FAERS Safety Report 6156775-7 (Version None)
Quarter: 2009Q2

REPORT INFORMATION
  Report Type: 
  Country: None (occurrence: None)
  Receive Date: 20090416
  Receipt Date: 20090407
  Transmission Date: 20091009
  Serious: Yes (Hospitalization, Other)
  Sender: FDA-Public Use
  Company Number: PHHY2009FR07013

PATIENT
  Age: 10 Year
  Sex: Female

DRUGS (1)
  1. TEGRETOL [Suspect]
     Indication: PARTIAL SEIZURES
     Dosage: 600 MG DAILY
     Route: 048
     Dates: start: 20090114, end: 20090206

REACTIONS (18)
  - CHOLESTASIS [None]
  - CONVULSION [None]
  - DRUG RASH WITH EOSINOPHILIA AND SYSTEMIC SYMPTOMS [None]
  - EOSINOPHILIA [None]
  - ERYTHEMA [None]
  - FACE OEDEMA [None]
  - LIVER INJURY [None]
  - LYMPHADENOPATHY [None]
  - LYMPHOCYTE COUNT INCREASED [None]
  - NEUTROPHIL COUNT INCREASED [None]
  - PYREXIA [None]
  - RASH [None]
  - RASH MORBILLIFORM [None]
  - RASH PAPULAR [None]
  - SKIN LESION [None]
  - SKIN PLAQUE [None]
  - SPLENOMEGALY [None]
  - TOXIC SKIN ERUPTION [None]
